FAERS Safety Report 10686846 (Version 4)
Quarter: 2015Q4

REPORT INFORMATION
  Report Type: Spontaneous
  Country: US (occurrence: US)
  Receive Date: 20150101
  Receipt Date: 20151021
  Transmission Date: 20160304
  Serious: Yes (Hospitalization, Disabling, Other)
  Sender: FDA-Public Use
  Company Number: US-MERCK-1412USA013707

PATIENT
  Age: 30 Year
  Sex: Male
  Weight: 80.27 kg

DRUGS (10)
  1. DILAUDID [Concomitant]
     Active Substance: HYDROMORPHONE HYDROCHLORIDE
     Indication: TUMOUR PAIN
     Dosage: 4 MG, 2-3 TABLETS EVERY 1 HOUR AS NEEDED
     Route: 065
     Dates: end: 201510
  2. ZOFRAN [Concomitant]
     Active Substance: ONDANSETRON HYDROCHLORIDE
     Indication: NAUSEA
     Dosage: 8 MG, 1 TABLET EVERY 8 HRS, PRN
     Route: 048
  3. PROTONIX [Concomitant]
     Active Substance: PANTOPRAZOLE SODIUM
     Indication: MALIGNANT MELANOMA
     Dosage: 40 MG, QD
     Route: 048
  4. KEYTRUDA [Suspect]
     Active Substance: PEMBROLIZUMAB
     Indication: METASTATIC MALIGNANT MELANOMA
     Dosage: 2 MG/KG, EVERY 3 WEEKS
     Route: 041
     Dates: start: 20141106, end: 20150421
  5. DURAGESIC [Concomitant]
     Active Substance: FENTANYL
     Indication: TUMOUR PAIN
     Dosage: 100 MCG/HR, 2 PATHCHES ONTO THE SKIN EVERY 48 HOURS X 30 DAYS
     Route: 061
  6. KEYTRUDA [Suspect]
     Active Substance: PEMBROLIZUMAB
     Dosage: UNK
  7. YERVOY [Suspect]
     Active Substance: IPILIMUMAB
     Indication: METASTATIC MALIGNANT MELANOMA
     Dosage: UNK
     Route: 065
     Dates: start: 20150803, end: 201510
  8. NIVOLUMAB [Suspect]
     Active Substance: NIVOLUMAB
     Indication: METASTATIC MALIGNANT MELANOMA
     Dosage: UNK
     Route: 065
     Dates: start: 20150803, end: 201510
  9. OXYCODONE [Concomitant]
     Active Substance: OXYCODONE
     Indication: TUMOUR PAIN
     Dosage: 20 MG TABS, ONE OR TWO TABLETS EVERY 3-4 HRS, PRN
     Route: 048
  10. PHENERGAN [Concomitant]
     Active Substance: PROMETHAZINE HYDROCHLORIDE
     Indication: NAUSEA
     Dosage: 25 MG TABLET, 2 TABLETS EVERY 6 HRS, PRN
     Route: 048

REACTIONS (24)
  - Hypogonadism male [Not Recovered/Not Resolved]
  - Hypothyroidism [Unknown]
  - Hypokalaemia [Unknown]
  - Hypomagnesaemia [Unknown]
  - Hypophysitis [Unknown]
  - Aplastic anaemia [Recovering/Resolving]
  - Medical device discomfort [Recovering/Resolving]
  - Hydronephrosis [Unknown]
  - Adrenal insufficiency [Not Recovered/Not Resolved]
  - Pulmonary embolism [Unknown]
  - Cytokine release syndrome [Recovering/Resolving]
  - Varicocele [Unknown]
  - Testicular pain [Unknown]
  - Fear of death [Unknown]
  - Urinary tract infection [Recovered/Resolved]
  - Diarrhoea [Unknown]
  - Breast pain [Unknown]
  - Metastatic malignant melanoma [Not Recovered/Not Resolved]
  - Small intestinal obstruction [Unknown]
  - Pleural effusion [Unknown]
  - Immunodeficiency [Unknown]
  - Cystitis [Unknown]
  - Dyspepsia [Unknown]
  - Constipation [Unknown]

NARRATIVE: CASE EVENT DATE: 20141106
